FAERS Safety Report 13839067 (Version 1)
Quarter: 2017Q3

REPORT INFORMATION
  Report Type: Spontaneous
  Country: US (occurrence: US)
  Receive Date: 20170805
  Receipt Date: 20170805
  Transmission Date: 20171127
  Serious: No
  Sender: FDA-Public Use
  Company Number: None

PATIENT
  Age: 49 Year
  Sex: Male
  Weight: 80.81 kg

DRUGS (1)
  1. SUBOXONE [Suspect]
     Active Substance: BUPRENORPHINE HYDROCHLORIDE\NALOXONE HYDROCHLORIDE
     Indication: DEPENDENCE
     Dosage: 1 3/4 DALEY, MOUTH
     Route: 048

REACTIONS (3)
  - Abdominal discomfort [None]
  - Product taste abnormal [None]
  - Product solubility abnormal [None]

NARRATIVE: CASE EVENT DATE: 201705
